FAERS Safety Report 7605319-9 (Version None)
Quarter: 2011Q3

REPORT INFORMATION
  Report Type: 
  Country: None (occurrence: None)
  Receive Date: 20110713
  Receipt Date: 20110628
  Transmission Date: 20111222
  Serious: Yes (Life-Threatening, Other)
  Sender: FDA-Public Use
  Company Number: US-BAYER-201040902NA

PATIENT
  Sex: Female
  Weight: 70.295 kg

DRUGS (3)
  1. YAZ [Suspect]
     Indication: CONTRACEPTION
     Dosage: UNK UNK, UNK
     Route: 048
     Dates: start: 20080101, end: 20090101
  2. YAZ [Suspect]
     Indication: MENSTRUATION IRREGULAR
  3. IBUPROFEN [Concomitant]

REACTIONS (6)
  - FATIGUE [None]
  - CHOLECYSTITIS CHRONIC [None]
  - GALLBLADDER NON-FUNCTIONING [None]
  - ORGAN FAILURE [None]
  - CHOLELITHIASIS [None]
  - ASTHENIA [None]
